FAERS Safety Report 5086587-7 (Version None)
Quarter: 2006Q3

REPORT INFORMATION
  Report Type: 
  Country: None (occurrence: None)
  Receive Date: 20060823
  Receipt Date: 20060815
  Transmission Date: 20061208
  Serious: Yes (Other)
  Sender: FDA-Public Use
  Company Number: JP-GLAXOSMITHKLINE-B0434844A

PATIENT
  Age: 38 Year
  Sex: Female

DRUGS (2)
  1. COMBIVIR [Suspect]
     Indication: HIV INFECTION
     Dosage: 2TAB PER DAY
     Route: 048
     Dates: start: 20000328
  2. VIRACEPT [Suspect]
     Indication: HIV INFECTION
     Route: 048
     Dates: start: 19980408

REACTIONS (7)
  - DRUG ERUPTION [None]
  - LYMPH NODE TUBERCULOSIS [None]
  - LYMPHADENITIS [None]
  - LYMPHADENOPATHY [None]
  - LYMPHOCYTE STIMULATION TEST POSITIVE [None]
  - RASH [None]
  - RASH GENERALISED [None]
